FAERS Safety Report 4487629-X (Version None)
Quarter: 2004Q4

REPORT INFORMATION
  Report Type: 
  Country: None (occurrence: None)
  Receive Date: 20041025
  Receipt Date: 20041014
  Transmission Date: 20050328
  Serious: Yes (Other)
  Sender: FDA-Public Use
  Company Number: 2004077855

PATIENT
  Sex: Female

DRUGS (1)
  1. NEURONTIN [Suspect]
     Indication: BIPOLAR DISORDER
     Dosage: ORAL
     Route: 048

REACTIONS (5)
  - DEFORMITY [None]
  - PAIN [None]
  - POLYTRAUMATISM [None]
  - SUICIDE ATTEMPT [None]
  - UNEVALUABLE EVENT [None]
